FAERS Safety Report 12492079 (Version 2)
Quarter: 2016Q3

REPORT INFORMATION
  Report Type: Spontaneous
  Country: JP (occurrence: JP)
  Receive Date: 20160623
  Receipt Date: 20160719
  Transmission Date: 20161109
  Serious: Yes (Hospitalization)
  Sender: FDA-Public Use
  Company Number: JP-ROCHE-1781262

PATIENT
  Age: 75 Year
  Sex: Male
  Weight: 59 kg

DRUGS (14)
  1. GOODMIN [Concomitant]
     Active Substance: BROTIZOLAM
     Indication: INSOMNIA
     Route: 048
     Dates: start: 20160520, end: 20160607
  2. CELECOX [Suspect]
     Active Substance: CELECOXIB
     Indication: HERPES ZOSTER
     Route: 048
     Dates: start: 20160524, end: 20160607
  3. MAGNESIUM OXIDE. [Concomitant]
     Active Substance: MAGNESIUM OXIDE
     Indication: CONSTIPATION
     Route: 048
  4. EQUA [Concomitant]
     Active Substance: VILDAGLIPTIN
     Indication: DIABETES MELLITUS
     Route: 048
  5. METHYCOBAL [Concomitant]
     Active Substance: METHYLCOBALAMIN
     Indication: PROPHYLAXIS
     Route: 048
  6. BETAMETHASONE. [Concomitant]
     Active Substance: BETAMETHASONE
     Indication: LUNG ADENOCARCINOMA
     Route: 048
  7. AZUNOL [Concomitant]
     Active Substance: SODIUM GUALENATE
     Indication: PROPHYLAXIS
     Route: 048
  8. ALFACALCIDOL [Concomitant]
     Active Substance: ALFACALCIDOL
     Indication: LUNG ADENOCARCINOMA
     Route: 048
  9. ALECENSA [Suspect]
     Active Substance: ALECTINIB HYDROCHLORIDE
     Indication: LUNG ADENOCARCINOMA
     Route: 048
     Dates: start: 20160603, end: 20160608
  10. TRAMAL [Suspect]
     Active Substance: TRAMADOL
     Indication: HERPES ZOSTER
     Dosage: TRAMAL OD
     Route: 048
     Dates: start: 20160531, end: 20160607
  11. SULFAMETHOXAZOLE AND TRIMETHOPRIM [Concomitant]
     Active Substance: SULFAMETHOXAZOLE\TRIMETHOPRIM
     Indication: PROPHYLAXIS
     Dosage: DOSAGE IS UNCERTAIN.
     Route: 048
  12. BELSOMRA [Concomitant]
     Active Substance: SUVOREXANT
     Indication: INSOMNIA
     Route: 048
     Dates: end: 20160607
  13. ALECENSA [Suspect]
     Active Substance: ALECTINIB HYDROCHLORIDE
     Route: 048
     Dates: start: 2016
  14. NEXIUM [Concomitant]
     Active Substance: ESOMEPRAZOLE MAGNESIUM
     Indication: PROPHYLAXIS
     Route: 048

REACTIONS (2)
  - Restlessness [Recovered/Resolved]
  - Delirium [Recovered/Resolved]

NARRATIVE: CASE EVENT DATE: 20160605
